FAERS Safety Report 8552825-9 (Version None)
Quarter: 2012Q3

REPORT INFORMATION
  Report Type: 
  Country: None (occurrence: None)
  Receive Date: 20120731
  Receipt Date: 20120726
  Transmission Date: 20120928
  Serious: Yes (Hospitalization)
  Sender: FDA-Public Use
  Company Number: PHHY2012TR064790

PATIENT
  Age: 37 Year
  Sex: Male

DRUGS (2)
  1. CLOZAPINE [Suspect]
     Indication: SCHIZOPHRENIA
     Dosage: 300 MG (1 DOSE IN THE MORNING, 2 DOSES IN THE EVENING).
  2. VALPROATE SODIUM [Concomitant]

REACTIONS (10)
  - HYPERSOMNIA [None]
  - HYPERHIDROSIS [None]
  - WEIGHT DECREASED [None]
  - MYALGIA [None]
  - BLOOD PRESSURE INCREASED [None]
  - INSOMNIA [None]
  - TREMOR [None]
  - LOSS OF CONSCIOUSNESS [None]
  - NEUROLEPTIC MALIGNANT SYNDROME [None]
  - RESTLESSNESS [None]
